FAERS Safety Report 6443644-8 (Version None)
Quarter: 2009Q4

REPORT INFORMATION
  Report Type: 
  Country: None (occurrence: None)
  Receive Date: 20091117
  Receipt Date: 20091105
  Transmission Date: 20100525
  Serious: Yes (Hospitalization)
  Sender: FDA-Public Use
  Company Number: FR-CELGENEUS-056-21880-09070157

PATIENT
  Sex: Female

DRUGS (5)
  1. REVLIMID [Suspect]
     Indication: MYELODYSPLASTIC SYNDROME
     Route: 048
     Dates: start: 20090617, end: 20090618
  2. REVLIMID [Suspect]
     Route: 048
  3. EPOGEN [Concomitant]
     Indication: DRUG USE FOR UNKNOWN INDICATION
     Route: 065
  4. RED BLOOD CELL TRANSFUSION [Concomitant]
     Indication: ANAEMIA
     Route: 051
     Dates: start: 20090620, end: 20090620
  5. RED BLOOD CELL TRANSFUSION [Concomitant]
     Route: 051
     Dates: start: 20090624, end: 20090624

REACTIONS (1)
  - ANAEMIA HAEMOLYTIC AUTOIMMUNE [None]
